FAERS Safety Report 14342640 (Version 4)
Quarter: 2020Q1

REPORT INFORMATION
  Report Type: Report from Study
  Country: JP (occurrence: JP)
  Receive Date: 20180102
  Receipt Date: 20200101
  Transmission Date: 20200409
  Serious: Yes (Hospitalization, Other)
  Sender: FDA-Public Use
  Company Number: JP-ACTELION-A-CH2017-164849

PATIENT
  Age: 5 Year
  Sex: Female

DRUGS (15)
  1. ADCIRCA [Concomitant]
     Active Substance: TADALAFIL
  2. FLOLAN [Concomitant]
     Active Substance: EPOPROSTENOL SODIUM
  3. NITRIC OXIDE. [Concomitant]
     Active Substance: NITRIC OXIDE
  4. OPSUMIT [Suspect]
     Active Substance: MACITENTAN
     Indication: PULMONARY ARTERIAL HYPERTENSION
     Dosage: 2.4 MG, QD
     Route: 048
     Dates: start: 20151228, end: 20180828
  5. OPSUMIT [Suspect]
     Active Substance: MACITENTAN
     Dosage: 3 MG, QD
     Route: 048
     Dates: start: 20180829
  6. TACROLIMUS. [Suspect]
     Active Substance: TACROLIMUS
     Indication: PRODUCT USED FOR UNKNOWN INDICATION
     Route: 048
  7. FERROMIA [Concomitant]
     Active Substance: SODIUM FERROUS CITRATE
  8. SANDIMMUN [Concomitant]
     Active Substance: CYCLOSPORINE
  9. NEORAL [Concomitant]
     Active Substance: CYCLOSPORINE
  10. ONON [Concomitant]
     Active Substance: PRANLUKAST
  11. PULMICORT TURBUHALER [Concomitant]
     Active Substance: BUDESONIDE
  12. PROGRAF [Concomitant]
     Active Substance: TACROLIMUS
  13. OXYGEN. [Concomitant]
     Active Substance: OXYGEN
  14. OPSUMIT [Suspect]
     Active Substance: MACITENTAN
     Dosage: 1.5 MG, QD
     Route: 048
     Dates: start: 20150902, end: 20151227
  15. URSODEOXYCHOLIC ACID [Concomitant]
     Active Substance: URSODIOL

REACTIONS (8)
  - Hepatic function abnormal [Recovered/Resolved]
  - Alanine aminotransferase increased [Recovered/Resolved]
  - Hypertensive encephalopathy [Recovered/Resolved]
  - Liver transplant rejection [Recovered/Resolved]
  - Liver transplant [Recovered/Resolved]
  - Gamma-glutamyltransferase increased [Recovered/Resolved]
  - Blood alkaline phosphatase abnormal [Recovered/Resolved]
  - Aspartate aminotransferase increased [Recovered/Resolved]

NARRATIVE: CASE EVENT DATE: 20160115
